FAERS Safety Report 13843330 (Version 1)
Quarter: 2017Q3

REPORT INFORMATION
  Report Type: Spontaneous
  Country: GB (occurrence: GB)
  Receive Date: 20170808
  Receipt Date: 20170808
  Transmission Date: 20171127
  Serious: Yes (Other)
  Sender: FDA-Public Use
  Company Number: GB-CIPLA LTD.-2017GB13504

PATIENT

DRUGS (5)
  1. G-CSF [Suspect]
     Active Substance: GRANULOCYTE COLONY-STIMULATING FACTOR NOS
     Indication: PANCREATIC CARCINOMA METASTATIC
     Dosage: UNK, NOT PROVIDED
     Route: 065
  2. ZOPICLONE [Concomitant]
     Active Substance: ZOPICLONE
     Indication: POOR QUALITY SLEEP
     Dosage: 7.5 MG, UNK
     Route: 065
     Dates: start: 201501
  3. GEMCITABINE [Suspect]
     Active Substance: GEMCITABINE\GEMCITABINE HYDROCHLORIDE
     Indication: PANCREATIC CARCINOMA METASTATIC
     Dosage: UNK, NOT PROVIDED
     Route: 065
  4. ABRAXANE [Suspect]
     Active Substance: PACLITAXEL
     Indication: PANCREATIC CARCINOMA METASTATIC
     Dosage: UNK, (UP TO 125MG/M2) 3 TIMES ON DAYS 1, 8, AND 15 OF EVERY 28-DAY CYCLE
     Route: 041
     Dates: start: 20170317
  5. ABRAXANE [Suspect]
     Active Substance: PACLITAXEL
     Dosage: UNK, DOSE REDUCTION AND ALTERED SCHEDULE
     Route: 041

REACTIONS (2)
  - Myalgia [Recovered/Resolved]
  - Platelet count decreased [Recovered/Resolved]

NARRATIVE: CASE EVENT DATE: 2017
